FAERS Safety Report 8616643-5 (Version None)
Quarter: 2012Q3

REPORT INFORMATION
  Report Type: 
  Country: None (occurrence: None)
  Receive Date: 20120823
  Receipt Date: 20120802
  Transmission Date: 20120928
  Serious: No
  Sender: FDA-Public Use
  Company Number: US-009507513-1208USA001722

PATIENT

DRUGS (2)
  1. JANUVIA [Suspect]
     Indication: HYPERGLYCAEMIA
     Dosage: 100 MG, QD
     Route: 048
  2. METFORMIN HCL [Concomitant]

REACTIONS (6)
  - WEIGHT DECREASED [None]
  - NERVOUS SYSTEM DISORDER [None]
  - PARAESTHESIA [None]
  - HYPOAESTHESIA [None]
  - HYPOGLYCAEMIA [None]
  - NEUROLOGICAL SYMPTOM [None]
